FAERS Safety Report 5241431-X (Version None)
Quarter: 2007Q1

REPORT INFORMATION
  Report Type: 
  Country: None (occurrence: None)
  Receive Date: 20070212
  Receipt Date: 20070212
  Transmission Date: 20070707
  Serious: Yes (Death, Hospitalization)
  Sender: FDA-Public Use
  Company Number: None

PATIENT
  Age: 50 Year
  Sex: Female
  Weight: 50 kg

DRUGS (27)
  1. EFAVIRENZ [Suspect]
     Indication: HIV INFECTION
     Dosage: 600 MG QHS PO
     Route: 048
     Dates: start: 20050101, end: 20061228
  2. BACTRIM [Suspect]
     Indication: PROPHYLAXIS AGAINST TRANSPLANT REJECTION
     Dosage: SS QD PO
     Route: 048
     Dates: start: 20060410, end: 20061001
  3. IMIPENEM/CILASTATIN [Concomitant]
  4. ZOFRAN [Concomitant]
  5. ACETAMINOPHEN [Concomitant]
  6. LACTOBACILLUS [Concomitant]
  7. FLUVASTATIN [Concomitant]
  8. EMTRICITABINE [Concomitant]
  9. TNF [Concomitant]
  10. SUSTIVA [Concomitant]
  11. ESCITALOPRAM [Concomitant]
  12. DAPSONE [Concomitant]
  13. FLAGYL [Concomitant]
  14. HEPARIN TACROLIMUS [Concomitant]
  15. VANCOMYCIN HYDROCHLORIDE [Concomitant]
  16. MORPHINE [Concomitant]
  17. URSODIOL [Concomitant]
  18. VIT K [Concomitant]
  19. MMF [Concomitant]
  20. FLUCONAZOLE [Concomitant]
  21. VASOPRESSIN [Concomitant]
  22. LOPERAMIDE HCL [Concomitant]
  23. HYDROCORTISONE [Concomitant]
  24. PANTOPRAZOLE SODIUM [Concomitant]
  25. EPO FENTANLY [Concomitant]
  26. FACTOR 7 INSULIN [Concomitant]
  27. DIPRIVAN ALBUTEROL [Concomitant]

REACTIONS (9)
  - BILE DUCT OBSTRUCTION [None]
  - DISEASE RECURRENCE [None]
  - HEPATITIS C VIRUS [None]
  - LIVER TRANSPLANT [None]
  - MALNUTRITION [None]
  - POST PROCEDURAL COMPLICATION [None]
  - RASH [None]
  - SEPSIS [None]
  - TRANSPLANT REJECTION [None]
